FAERS Safety Report 7015593-8 (Version None)
Quarter: 2010Q3

REPORT INFORMATION
  Report Type: 
  Country: None (occurrence: None)
  Receive Date: 20100927
  Receipt Date: 20100923
  Transmission Date: 20110219
  Serious: Yes (Hospitalization)
  Sender: FDA-Public Use
  Company Number: NL-BRISTOL-MYERS SQUIBB COMPANY-15180607

PATIENT
  Age: 61 Year
  Sex: Female

DRUGS (2)
  1. CETUXIMAB [Suspect]
     Indication: NON-SMALL CELL LUNG CANCER
     Dosage: RECENT INF:28JUN2010
     Route: 042
     Dates: start: 20100614, end: 20100629
  2. CISPLATIN [Suspect]
     Indication: NON-SMALL CELL LUNG CANCER
     Dosage: RECENT INF:29JUN10
     Route: 042
     Dates: start: 20100621, end: 20100629

REACTIONS (1)
  - PNEUMONIA PRIMARY ATYPICAL [None]
